FAERS Safety Report 4611757-9 (Version None)
Quarter: 2005Q2

REPORT INFORMATION
  Report Type: 
  Country: None (occurrence: None)
  Receive Date: 20050308
  Receipt Date: 20041208
  Transmission Date: 20051028
  Serious: Yes (Other)
  Sender: FDA-Public Use
  Company Number: 2004UW25089

PATIENT
  Age: 65 Year
  Sex: Male
  Weight: 87.54 kg

DRUGS (3)
  1. CRESTOR [Suspect]
     Indication: HYPERCHOLESTEROLAEMIA
     Dosage: 10 MG QD PO
     Route: 048
  2. PENTASA [Concomitant]
  3. BETAPACE [Concomitant]

REACTIONS (1)
  - CROHN'S DISEASE [None]
